FAERS Safety Report 12983640 (Version 2)
Quarter: 2016Q4

REPORT INFORMATION
  Report Type: Spontaneous
  Country: CH (occurrence: CH)
  Receive Date: 20161129
  Receipt Date: 20161215
  Transmission Date: 20170207
  Serious: Yes (Hospitalization, Other)
  Sender: FDA-Public Use
  Company Number: CH-PFIZER INC-2016534425

PATIENT
  Age: 59 Year
  Sex: Female

DRUGS (6)
  1. PROLIA [Suspect]
     Active Substance: DENOSUMAB
     Dosage: 1 DF, 1X/6 MONTHS
     Route: 058
     Dates: start: 20160812
  2. PREDNISON [Suspect]
     Active Substance: PREDNISONE
     Indication: POLYSEROSITIS
     Dosage: 10 MG, 1X/DAY
     Route: 048
     Dates: start: 20140307
  3. SERTRALINE HCL [Suspect]
     Active Substance: SERTRALINE HYDROCHLORIDE
     Dosage: 100 MG, 1X/DAY
     Route: 048
  4. PROLIA [Suspect]
     Active Substance: DENOSUMAB
     Indication: OSTEOPOROSIS
     Dosage: 1 DF, 1X/6 MONTHS
     Route: 058
     Dates: start: 2012, end: 201508
  5. AROMASIN [Suspect]
     Active Substance: EXEMESTANE
     Indication: OESTROGEN RECEPTOR POSITIVE BREAST CANCER
     Dosage: 25 MG, 1X/DAY
     Route: 048
     Dates: start: 201307
  6. PANTOPRAZOL [Suspect]
     Active Substance: PANTOPRAZOLE SODIUM
     Dosage: 40 MG, 1X/DAY
     Route: 048
     Dates: start: 2014

REACTIONS (6)
  - Thoracic vertebral fracture [Not Recovered/Not Resolved]
  - Abscess oral [Unknown]
  - Spinal fracture [Unknown]
  - Lumbar vertebral fracture [Not Recovered/Not Resolved]
  - Rebound effect [Unknown]
  - Back pain [Unknown]

NARRATIVE: CASE EVENT DATE: 201602
